FAERS Safety Report 13318660 (Version 1)
Quarter: 2017Q1

REPORT INFORMATION
  Report Type: Spontaneous
  Country: TW (occurrence: TW)
  Receive Date: 20170310
  Receipt Date: 20170310
  Transmission Date: 20170428
  Serious: Yes (Hospitalization, Other)
  Sender: FDA-Public Use
  Company Number: TW-AMGEN-TWNSP2017036063

PATIENT
  Age: 56 Year
  Sex: Female

DRUGS (5)
  1. CELEBREX [Concomitant]
     Active Substance: CELECOXIB
     Dosage: 200 MG, ONCE A DAY
     Route: 048
  2. PREDNISOLONE. [Concomitant]
     Active Substance: PREDNISOLONE
     Dosage: 1 DF, ONCE A DAY
     Route: 048
  3. MTX [Concomitant]
     Active Substance: METHOTREXATE SODIUM
     Dosage: 4 DF, EVERY WEEK
     Route: 048
     Dates: end: 20170217
  4. ENBREL [Suspect]
     Active Substance: ETANERCEPT
     Indication: RHEUMATOID ARTHRITIS
     Dosage: 25 MG, TWICE A WEEK
     Route: 058
     Dates: start: 20040427, end: 20170217
  5. LOWEN [Concomitant]
     Dosage: 1 DF, AT BED TIME
     Route: 048

REACTIONS (1)
  - Pancreatitis acute [Unknown]

NARRATIVE: CASE EVENT DATE: 20170217
